FAERS Safety Report 6791357-5 (Version None)
Quarter: 2010Q2

REPORT INFORMATION
  Report Type: 
  Country: None (occurrence: None)
  Receive Date: 20100618
  Receipt Date: 20100610
  Transmission Date: 20101027
  Serious: Yes (Hospitalization)
  Sender: FDA-Public Use
  Company Number: 2010SP022186

PATIENT
  Age: 49 Year
  Sex: Female

DRUGS (2)
  1. PEG-INTRON [Suspect]
     Indication: HEPATITIS C
     Dosage: ; SC
     Route: 058
     Dates: start: 20100311
  2. REBETOL [Suspect]
     Indication: HEPATITIS C
     Dosage: ; PO
     Route: 048
     Dates: start: 20100311

REACTIONS (10)
  - AMNESIA [None]
  - CENTRAL NERVOUS SYSTEM INFECTION [None]
  - CONDITION AGGRAVATED [None]
  - DECREASED APPETITE [None]
  - DELIRIUM [None]
  - FATIGUE [None]
  - FRUSTRATION [None]
  - HEPATIC CIRRHOSIS [None]
  - HEPATIC ENCEPHALOPATHY [None]
  - POST PROCEDURAL HAEMORRHAGE [None]
